FAERS Safety Report 16714502 (Version 1)
Quarter: 2019Q3

REPORT INFORMATION
  Report Type: Spontaneous
  Country: NL (occurrence: NL)
  Receive Date: 20190819
  Receipt Date: 20190819
  Transmission Date: 20191004
  Serious: Yes (Other)
  Sender: FDA-Public Use
  Company Number: NL-ACCORD-151997

PATIENT
  Sex: Female

DRUGS (1)
  1. INJEXATE [Suspect]
     Active Substance: METHOTREXATE SODIUM
     Indication: RHEUMATIC DISORDER
     Dosage: ONCE A WEEK, STRENGTH: 12.5 MG/WWSP 0.25 ML
     Route: 051
     Dates: start: 201901

REACTIONS (2)
  - Needle issue [Unknown]
  - Syringe issue [Unknown]
